FAERS Safety Report 6634515-2 (Version None)
Quarter: 2010Q1

REPORT INFORMATION
  Report Type: 
  Country: None (occurrence: None)
  Receive Date: 20100315
  Receipt Date: 20100308
  Transmission Date: 20100710
  Serious: Yes (Hospitalization)
  Sender: FDA-Public Use
  Company Number: US-AMGEN-KDL393747

PATIENT
  Sex: Male

DRUGS (12)
  1. PROCRIT [Suspect]
     Indication: DIALYSIS
  2. ARANESP [Suspect]
     Indication: RENAL TRANSPLANT
     Dates: start: 20090904, end: 20100216
  3. TACROLIMUS [Concomitant]
     Dates: start: 20090823
  4. MYCOPHENOLATE MOFETIL [Concomitant]
     Dates: start: 20090823
  5. CYCLOSPORINE [Concomitant]
  6. TOPROL-XL [Concomitant]
  7. NORVASC [Concomitant]
  8. MYFORTIC [Concomitant]
  9. PREDNISONE [Concomitant]
  10. BACTRIM [Concomitant]
  11. SULFAMETHOXAZOLE [Concomitant]
     Dates: start: 20090823
  12. TRIMETHOPRIM [Concomitant]
     Dates: start: 20090823

REACTIONS (1)
  - APLASIA PURE RED CELL [None]
